FAERS Safety Report 8001045-5 (Version None)
Quarter: 2011Q4

REPORT INFORMATION
  Report Type: 
  Country: None (occurrence: None)
  Receive Date: 20111222
  Receipt Date: 20110810
  Transmission Date: 20120403
  Serious: No
  Sender: FDA-Public Use
  Company Number: US-GLAXOSMITHKLINE-A0941419A

PATIENT
  Age: 45 Year
  Sex: Female

DRUGS (3)
  1. CIPROFLOXACIN [Suspect]
     Indication: EAR INFECTION
     Route: 045
     Dates: start: 20110601
  2. FLUTICASONE FUROATE [Suspect]
     Route: 045
     Dates: start: 20110718, end: 20110718
  3. CLARITIN-D [Suspect]
     Indication: EAR INFECTION
     Route: 048
     Dates: start: 20110601, end: 20110718

REACTIONS (3)
  - ERYTHEMA [None]
  - SWELLING [None]
  - HYPERSENSITIVITY [None]
